FAERS Safety Report 20710564 (Version 1)
Quarter: 2022Q2

REPORT INFORMATION
  Report Type: Spontaneous
  Country: US (occurrence: US)
  Receive Date: 20220414
  Receipt Date: 20220414
  Transmission Date: 20220721
  Serious: Yes (Hospitalization, Other)
  Sender: FDA-Public Use
  Company Number: US-GSKCCFUS-Case-01346504_AE-78095

PATIENT
  Age: 69 Year
  Sex: Female

DRUGS (2)
  1. BENLYSTA [Suspect]
     Active Substance: BELIMUMAB
     Indication: Systemic lupus erythematosus
     Dosage: 10 MG/KG, Z EVERY 4 WEEKS
     Route: 042
  2. MODAFINIL [Concomitant]
     Active Substance: MODAFINIL
     Indication: Product used for unknown indication
     Dosage: UNK

REACTIONS (11)
  - Osteoarthritis [Unknown]
  - Lumbar radiculopathy [Unknown]
  - Neuralgia [Unknown]
  - Exostosis [Unknown]
  - Dural tear [Unknown]
  - Hospitalisation [Unknown]
  - Cerebrospinal fluid leakage [Unknown]
  - Atrial fibrillation [Unknown]
  - Cardiac ablation [Unknown]
  - Incoherent [Unknown]
  - Drug ineffective [Unknown]

NARRATIVE: CASE EVENT DATE: 20211206
